FAERS Safety Report 11458841 (Version 1)
Quarter: 2015Q3

REPORT INFORMATION
  Report Type: Spontaneous
  Country: US (occurrence: None)
  Receive Date: 20150903
  Receipt Date: 20150903
  Transmission Date: 20151125
  Serious: Yes (Other)
  Sender: FDA-Public Use
  Company Number: None

PATIENT
  Age: 66 Year
  Sex: Male
  Weight: 142.88 kg

DRUGS (12)
  1. YERVOY [Concomitant]
     Active Substance: IPILIMUMAB
  2. QUETIAPINE [Concomitant]
     Active Substance: QUETIAPINE
  3. ROSUVASTATIN [Concomitant]
     Active Substance: ROSUVASTATIN
  4. OMEGA 3 [Concomitant]
     Active Substance: OMEGA-3 FATTY ACIDS
  5. VALPROIC ACID. [Concomitant]
     Active Substance: VALPROIC ACID
  6. METOPROLOL TARTRATE. [Concomitant]
     Active Substance: METOPROLOL TARTRATE
  7. PIOGLITAZONE. [Concomitant]
     Active Substance: PIOGLITAZONE
  8. ONDANSETRON [Concomitant]
     Active Substance: ONDANSETRON
  9. OPDIVO [Suspect]
     Active Substance: NIVOLUMAB
     Indication: MALIGNANT MELANOMA
     Dosage: 427 MG Q 14 DAYS INTRAVENOUS
     Route: 042
  10. PREDNISONE. [Concomitant]
     Active Substance: PREDNISONE
  11. CHOLECALCIFEROL (VITAMIN D3) [Concomitant]
  12. AMLODIPINE [Concomitant]
     Active Substance: AMLODIPINE BESYLATE

REACTIONS (1)
  - Chills [None]

NARRATIVE: CASE EVENT DATE: 20150901
